FAERS Safety Report 9881542 (Version 2)
Quarter: 2014Q1

REPORT INFORMATION
  Report Type: Spontaneous
  Country: US (occurrence: None)
  Receive Date: 20140205
  Receipt Date: 20140311
  Transmission Date: 20141002
  Serious: Yes (Other)
  Sender: FDA-Public Use
  Company Number: AUR-APL-2014-01161

PATIENT
  Age: 50 Year
  Sex: Female

DRUGS (8)
  1. GABAPENTIN (GABAPENTIN) [Suspect]
     Indication: DEPRESSION
     Dosage: (1 DOSAGE FORMS), UNKNOWN
     Dates: start: 20140113
  2. GABAPENTIN (GABAPENTIN) [Suspect]
     Indication: SYSTEMIC LUPUS ERYTHEMATOSUS
     Dosage: (1 DOSAGE FORMS), UNKNOWN
     Dates: start: 20140113
  3. SERTRALINE (SERTRALINE) [Suspect]
     Indication: DEPRESSION
     Route: 048
     Dates: start: 20140113
  4. SERTRALINE (SERTRALINE) [Suspect]
     Indication: SYSTEMIC LUPUS ERYTHEMATOSUS
     Route: 048
     Dates: start: 20140113
  5. VYVANSE (ILISDEXAMFETAMINE MESILATE) [Concomitant]
  6. ADVAIR DISKUS (SERETIDE) [Concomitant]
  7. LOSARTAN/HYDROCHLOROTHIAZIDE (HYZAAR) [Concomitant]
  8. METFORMIN (METFORMIN) [Concomitant]

REACTIONS (7)
  - Feeling abnormal [None]
  - Burning sensation [None]
  - Bone pain [None]
  - Arthralgia [None]
  - Abdominal discomfort [None]
  - Abdominal distension [None]
  - Arthralgia [None]
